FAERS Safety Report 9403447 (Version 2)
Quarter: 2013Q3

REPORT INFORMATION
  Report Type: Spontaneous
  Country: RU (occurrence: RU)
  Receive Date: 20130716
  Receipt Date: 20130724
  Transmission Date: 20140515
  Serious: Yes (Other)
  Sender: FDA-Public Use
  Company Number: RU-ASTRAZENECA-2013SE50854

PATIENT
  Sex: Female

DRUGS (1)
  1. MARCAINE SPINAL HEAVY [Suspect]
     Indication: SPINAL ANAESTHESIA
     Dosage: 10-15 MG/ML DEPENDING ON WEIGHT
     Route: 037
     Dates: start: 201306

REACTIONS (2)
  - Hypoventilation [Recovered/Resolved]
  - Apnoea [Recovered/Resolved]
